FAERS Safety Report 4374558-5 (Version None)
Quarter: 2004Q2

REPORT INFORMATION
  Report Type: 
  Country: None (occurrence: None)
  Receive Date: 20040602
  Receipt Date: 20040213
  Transmission Date: 20050107
  Serious: No
  Sender: FDA-Public Use
  Company Number: 200412638BWH

PATIENT
  Age: 81 Year
  Sex: Male

DRUGS (4)
  1. LEVITRA [Suspect]
     Dosage: 5 MG, TOTAL DAILY, ORAL; SEE IMAGE
     Route: 048
     Dates: start: 20040210
  2. LEVITRA [Suspect]
     Dosage: 5 MG, TOTAL DAILY, ORAL; SEE IMAGE
     Route: 048
     Dates: start: 20040211
  3. LEVITRA [Suspect]
     Dosage: 5 MG, TOTAL DAILY, ORAL; SEE IMAGE
     Route: 048
     Dates: start: 20040212
  4. VIAGRA [Concomitant]

REACTIONS (1)
  - HEADACHE [None]
